FAERS Safety Report 6828665-5 (Version None)
Quarter: 2010Q3

REPORT INFORMATION
  Report Type: 
  Country: None (occurrence: None)
  Receive Date: 20100709
  Receipt Date: 20070215
  Transmission Date: 20110219
  Serious: No
  Sender: FDA-Public Use
  Company Number: US-PFIZER INC-2007013069

PATIENT
  Sex: Female
  Weight: 53.98 kg

DRUGS (5)
  1. CHANTIX [Suspect]
     Indication: SMOKING CESSATION THERAPY
     Route: 048
     Dates: start: 20070202
  2. SURMONTIL [Interacting]
     Indication: DEPRESSION
  3. LUNESTA [Interacting]
     Indication: INSOMNIA
  4. CLONAZEPAM [Interacting]
  5. ZELNORM [Concomitant]
     Dates: end: 20070101

REACTIONS (5)
  - ALCOHOL USE [None]
  - DRUG INTERACTION [None]
  - FOOD CRAVING [None]
  - TOBACCO USER [None]
  - UNEVALUABLE EVENT [None]
